FAERS Safety Report 21589898 (Version 1)
Quarter: 2022Q4

REPORT INFORMATION
  Report Type: Report from Study
  Country: FR (occurrence: None)
  Receive Date: 20221114
  Receipt Date: 20221114
  Transmission Date: 20230113
  Serious: Yes (Death)
  Sender: FDA-Public Use
  Company Number: 2022A339439

PATIENT
  Age: 797 Month
  Sex: Female
  Weight: 45 kg

DRUGS (1)
  1. EVUSHELD [Suspect]
     Active Substance: CILGAVIMAB\TIXAGEVIMAB
     Indication: COVID-19 prophylaxis
     Dosage: TIXAGEVIMAB 150 MG/CILGAVIMAB 150 MG ONCE/SINGLE ADMINISTRATION
     Route: 030
     Dates: start: 20220110, end: 20220110

REACTIONS (2)
  - General physical health deterioration [Fatal]
  - Slipping rib syndrome [Fatal]

NARRATIVE: CASE EVENT DATE: 20220909
